FAERS Safety Report 5334355-0 (Version None)
Quarter: 2007Q2

REPORT INFORMATION
  Report Type: 
  Country: None (occurrence: None)
  Receive Date: 20070525
  Receipt Date: 20070215
  Transmission Date: 20071010
  Serious: No
  Sender: FDA-Public Use
  Company Number: US-BRISTOL-MYERS SQUIBB COMPANY-13682083

PATIENT
  Age: 55 Year
  Sex: Female

DRUGS (10)
  1. CYTOXAN [Suspect]
     Indication: SYSTEMIC LUPUS ERYTHEMATOSUS
     Route: 042
     Dates: start: 20070126, end: 20070126
  2. CELEXA [Concomitant]
  3. SIMVASTATIN [Concomitant]
  4. LISINOPRIL [Concomitant]
  5. GABAPENTIN [Concomitant]
  6. NORTRIPTYLINE HCL [Concomitant]
  7. DIAZEPAM [Concomitant]
  8. HYDROCODONE BITARTRATE [Concomitant]
  9. ASPIRIN [Concomitant]
  10. VITAMIN B [Concomitant]

REACTIONS (7)
  - CHILLS [None]
  - ERYTHEMA [None]
  - FATIGUE [None]
  - HOT FLUSH [None]
  - MUSCULAR WEAKNESS [None]
  - NAUSEA [None]
  - RASH [None]
